FAERS Safety Report 12680975 (Version 2)
Quarter: 2017Q4

REPORT INFORMATION
  Report Type: Report from Study
  Country: US (occurrence: US)
  Receive Date: 20160824
  Receipt Date: 20171012
  Transmission Date: 20180320
  Serious: No
  Sender: FDA-Public Use
  Company Number: US-TEVA-671032USA

PATIENT
  Age: 21 Year
  Sex: Female

DRUGS (2)
  1. COPAXONE [Suspect]
     Active Substance: GLATIRAMER ACETATE
     Indication: MULTIPLE SCLEROSIS
     Route: 058
     Dates: start: 20160515, end: 20160615
  2. TYSABRI [Concomitant]
     Active Substance: NATALIZUMAB

REACTIONS (4)
  - Nausea [Unknown]
  - Vomiting [Unknown]
  - Exposure during pregnancy [Unknown]
  - Live birth [Unknown]

NARRATIVE: CASE EVENT DATE: 20160617
